FAERS Safety Report 8864139 (Version 1)
Quarter: 2012Q4

REPORT INFORMATION
  Report Type: 
  Country: US (occurrence: US)
  Receive Date: 20121024
  Receipt Date: 20121024
  Transmission Date: 20130627
  Serious: No
  Sender: FDA-Public Use
  Company Number: US-AMGEN-USASP2011065840

PATIENT
  Age: 59 Year
  Sex: Female

DRUGS (8)
  1. ENBREL [Suspect]
     Indication: PRODUCT USED FOR UNKNOWN INDICATION
     Dosage: 50 mg, qwk
  2. PREDNISONE [Concomitant]
     Dosage: 10 mg, UNK
  3. TOPROL [Concomitant]
     Dosage: 100 mg, UNK
  4. SYNTHROID [Concomitant]
     Dosage: 88 mug, UNK
  5. MULTIVITAMIN [Concomitant]
  6. VITAMIN D [Concomitant]
     Dosage: 50000 IU, UNK
  7. MAGNESIUM [Concomitant]
     Dosage: 200 mg, UNK
  8. CALCIUM [Concomitant]
     Dosage: 500 mg, UNK

REACTIONS (1)
  - Pneumonitis [Unknown]
